FAERS Safety Report 8190173-X (Version None)
Quarter: 2012Q1

REPORT INFORMATION
  Report Type: 
  Country: None (occurrence: None)
  Receive Date: 20120305
  Receipt Date: 20120223
  Transmission Date: 20120608
  Serious: Yes (Disabling, Other)
  Sender: FDA-Public Use
  Company Number: ACO_29487_2012

PATIENT
  Age: 69 Year
  Sex: Female

DRUGS (18)
  1. LEXAPRO [Concomitant]
  2. HMG COA REDUCTASE INHIBITORS [Concomitant]
  3. ELAVIL /00002202/ (AMITRIPTYLINE HYDROCHLORIDE) [Concomitant]
  4. CYANOCOBALAMIN [Concomitant]
  5. GINKGO BILOBA (GINKGO BILOBA) [Concomitant]
  6. AMPYRA [Suspect]
     Dosage: 10 MG, BID, ORAL
     Route: 048
  7. ENABLEX	/01760401/ (DARIFENACIN) [Concomitant]
  8. AMPYRA [Suspect]
     Dosage: 10 MG AT LEAST 1 PILL DAILY, ORAL
     Route: 048
     Dates: start: 20111201
  9. REBIF [Concomitant]
  10. FISH OIL (FISH OIL) [Concomitant]
  11. LEVOTHYROXINE SODIUM [Concomitant]
  12. OSCAL /00514701/ (CALCITRIOL) [Concomitant]
  13. ERGOCALCIFEROL [Concomitant]
  14. DOCUSATE (DOCUSATE) [Concomitant]
  15. ACIDOPHILUS (LACTOBACILLUS ACIDOPHILUS) [Concomitant]
  16. AMPYRA [Suspect]
     Indication: GAIT DISTURBANCE
     Dosage: 10 MG, BID, ORAL
     Route: 048
     Dates: start: 20100701, end: 20111201
  17. FOSAMAX [Concomitant]
  18. GLUCOSAMINE (GLUCOSAMINE) [Concomitant]

REACTIONS (5)
  - DRUG DOSE OMISSION [None]
  - ABASIA [None]
  - GAIT DISTURBANCE [None]
  - INAPPROPRIATE SCHEDULE OF DRUG ADMINISTRATION [None]
  - DRUG EFFECT DECREASED [None]
